FAERS Safety Report 23886467 (Version 1)
Quarter: 2024Q2

REPORT INFORMATION
  Report Type: Spontaneous
  Country: US (occurrence: US)
  Receive Date: 20240522
  Receipt Date: 20240522
  Transmission Date: 20240716
  Serious: No
  Sender: FDA-Public Use
  Company Number: US-Stemline Therapeutics, Inc.-2024ST001217

PATIENT
  Age: 75 Year
  Sex: Female

DRUGS (2)
  1. ORSERDU [Suspect]
     Active Substance: ELACESTRANT
     Indication: Product used for unknown indication
     Route: 048
     Dates: start: 20230725
  2. PIQRAY [Concomitant]
     Active Substance: ALPELISIB
     Indication: Breast cancer
     Dosage: 300MG DAILY
     Dates: start: 20240130

REACTIONS (6)
  - Oral pain [Unknown]
  - Tongue ulceration [Unknown]
  - Lip erythema [Unknown]
  - Lip ulceration [Unknown]
  - Gingival ulceration [Unknown]
  - Mouth ulceration [Unknown]
